FAERS Safety Report 7807910-3 (Version None)
Quarter: 2011Q4

REPORT INFORMATION
  Report Type: 
  Country: None (occurrence: None)
  Receive Date: 20111011
  Receipt Date: 20111004
  Transmission Date: 20120403
  Serious: Yes (Death, Hospitalization)
  Sender: FDA-Public Use
  Company Number: MX-GILEAD-2011-0039751

PATIENT

DRUGS (2)
  1. TRUVADA [Suspect]
     Indication: HIV INFECTION
     Route: 048
     Dates: start: 20110101
  2. EFAVIRENZ [Concomitant]
     Indication: HIV INFECTION
     Dates: start: 20110101

REACTIONS (5)
  - HAEMOGLOBIN DECREASED [None]
  - WHITE BLOOD CELL COUNT DECREASED [None]
  - BLOOD CREATININE INCREASED [None]
  - CEREBRAL TOXOPLASMOSIS [None]
  - PLATELET COUNT DECREASED [None]
